FAERS Safety Report 6336658-X (Version None)
Quarter: 2009Q3

REPORT INFORMATION
  Report Type: 
  Country: None (occurrence: None)
  Receive Date: 20090831
  Receipt Date: 20090831
  Transmission Date: 20100115
  Serious: Yes (Other)
  Sender: FDA-Public Use
  Company Number: None

PATIENT
  Age: 61 Year
  Sex: Female
  Weight: 84.8226 kg

DRUGS (2)
  1. KAPIDEX [Suspect]
     Indication: GASTROOESOPHAGEAL REFLUX DISEASE
     Dosage: 60 MG 1 PER DAY PO
     Route: 048
     Dates: start: 20090613, end: 20090620
  2. MIRAPEX [Suspect]
     Indication: PAIN IN EXTREMITY
     Dosage: 0.25 MG 1 PER DAY PO
     Route: 048
     Dates: start: 20090119, end: 20090127

REACTIONS (4)
  - CONTUSION [None]
  - PAIN [None]
  - PRURITUS [None]
  - RASH [None]
